FAERS Safety Report 6685598-5 (Version None)
Quarter: 2010Q2

REPORT INFORMATION
  Report Type: 
  Country: None (occurrence: None)
  Receive Date: 20100419
  Receipt Date: 20100409
  Transmission Date: 20101027
  Serious: No
  Sender: FDA-Public Use
  Company Number: US-BIOGENIDEC-2010BI012355

PATIENT
  Age: 49 Year
  Sex: Female

DRUGS (1)
  1. TYSABRI [Suspect]
     Indication: MULTIPLE SCLEROSIS
     Route: 042
     Dates: start: 20100305

REACTIONS (6)
  - ANXIETY [None]
  - ERYTHEMA [None]
  - FEELING COLD [None]
  - PRURITUS [None]
  - TACHYCARDIA [None]
  - URINARY TRACT INFECTION [None]
